FAERS Safety Report 9564984 (Version 7)
Quarter: 2014Q1

REPORT INFORMATION
  Report Type: Spontaneous
  Country: JP (occurrence: JP)
  Receive Date: 20130930
  Receipt Date: 20140321
  Transmission Date: 20141002
  Serious: Yes (Life-Threatening, Other)
  Sender: FDA-Public Use
  Company Number: PHHY2013JP108206

PATIENT
  Age: 50 Year
  Sex: Female
  Weight: 29 kg

DRUGS (18)
  1. TEGRETOL [Suspect]
     Indication: EPILEPSY
     Dosage: 200 MG, BID
     Dates: start: 19820410, end: 19820430
  2. TEGRETOL [Suspect]
     Dosage: 200 MG, TID
     Route: 048
     Dates: start: 19820501, end: 20020708
  3. TEGRETOL [Suspect]
     Dosage: 200 MG, TID
     Route: 048
     Dates: start: 20020709, end: 20070705
  4. TEGRETOL [Suspect]
     Dosage: 750 MG
     Dates: start: 2005
  5. TEGRETOL [Suspect]
     Dosage: 250 MG, TID
     Route: 048
     Dates: start: 20070706, end: 20121031
  6. VALPROIC ACID [Suspect]
     Indication: EPILEPSY
     Dosage: 720 MG
     Dates: start: 2005
  7. VALPROIC ACID [Suspect]
     Dosage: 400 UNK, UNK
  8. DEPAKENE [Concomitant]
     Indication: EPILEPSY
     Dosage: 720 MG, UNK
     Route: 048
     Dates: start: 20050909
  9. DEPAKENE [Concomitant]
     Dosage: 600 MG, UNK
     Route: 048
  10. DEPAKENE [Concomitant]
     Dosage: 400 MG, UNK
     Route: 048
  11. E KEPPRA [Concomitant]
     Indication: EPILEPSY
     Dosage: 500 MG, UNK
     Route: 048
     Dates: start: 20121017
  12. E KEPPRA [Concomitant]
     Dosage: 750 MG, UNK
     Route: 048
  13. MAGMITT [Concomitant]
     Indication: CONSTIPATION
     Dosage: 750 MG, UNK
     Route: 048
     Dates: start: 20050603
  14. GASCON [Concomitant]
     Indication: GASTROINTESTINAL MOTILITY DISORDER
     Dosage: 120 MG, UNK
     Route: 048
     Dates: start: 20060105
  15. L CARTIN [Concomitant]
     Indication: CARNITINE DEFICIENCY
     Dosage: 900 MG, UNK
     Route: 048
     Dates: start: 20121017
  16. LASIX [Concomitant]
     Indication: CARDIAC HYPERTROPHY
     Dosage: 10 MG, UNK
     Route: 048
     Dates: start: 20090811, end: 20130628
  17. FRANDOL S [Concomitant]
     Indication: CARDIAC HYPERTROPHY
     Dosage: 40 MG, UNK
     Route: 062
     Dates: start: 20090811, end: 20091103
  18. ANTUP [Concomitant]
     Indication: CARDIAC HYPERTROPHY
     Dosage: 40 MG, UNK
     Route: 062
     Dates: start: 20091104

REACTIONS (16)
  - Sick sinus syndrome [Recovered/Resolved]
  - Bradycardia [Recovered/Resolved]
  - Respiratory distress [Unknown]
  - Carnitine decreased [Unknown]
  - Cardiac murmur [Unknown]
  - Blood pressure decreased [Unknown]
  - Speech disorder [Unknown]
  - Cardiomegaly [Unknown]
  - Hypertrophic cardiomyopathy [Not Recovered/Not Resolved]
  - N-terminal prohormone brain natriuretic peptide increased [Unknown]
  - Pupillary reflex impaired [Unknown]
  - Nystagmus [Unknown]
  - Quadriplegia [Unknown]
  - Eye movement disorder [Unknown]
  - Electroencephalogram abnormal [Unknown]
  - Pericardial effusion [Not Recovered/Not Resolved]
